FAERS Safety Report 6385320-6 (Version None)
Quarter: 2009Q4

REPORT INFORMATION
  Report Type: 
  Country: None (occurrence: None)
  Receive Date: 20091002
  Receipt Date: 20080805
  Transmission Date: 20100525
  Serious: Yes (Other)
  Sender: FDA-Public Use
  Company Number: US-ASTRAZENECA-2008UW15906

PATIENT
  Age: 56 Year
  Sex: Female

DRUGS (1)
  1. ARIMIDEX [Suspect]
     Indication: BREAST CANCER FEMALE
     Route: 048
     Dates: start: 20080301

REACTIONS (5)
  - BONE PAIN [None]
  - FACIAL BONES FRACTURE [None]
  - LOWER LIMB FRACTURE [None]
  - SKULL FRACTURE [None]
  - VULVOVAGINITIS [None]
